FAERS Safety Report 5387715-6 (Version None)
Quarter: 2007Q3

REPORT INFORMATION
  Report Type: 
  Country: None (occurrence: None)
  Receive Date: 20070716
  Receipt Date: 20070709
  Transmission Date: 20080115
  Serious: Yes (Hospitalization, Other)
  Sender: FDA-Public Use
  Company Number: A0650609A

PATIENT
  Age: 52 Year
  Sex: Female

DRUGS (5)
  1. TYKERB [Suspect]
     Indication: BREAST CANCER
     Dosage: 1250MG PER DAY
     Route: 048
     Dates: start: 20070415
  2. LUNESTA [Concomitant]
  3. LYRICA [Concomitant]
  4. LORCET-HD [Concomitant]
  5. LORTAB [Concomitant]

REACTIONS (16)
  - CARDIAC TAMPONADE [None]
  - CHEST PAIN [None]
  - COUGH [None]
  - DECREASED APPETITE [None]
  - DISEASE PROGRESSION [None]
  - DRY SKIN [None]
  - DYSPNOEA [None]
  - HYPOKALAEMIA [None]
  - HYPOXIA [None]
  - MALIGNANT PLEURAL EFFUSION [None]
  - NAUSEA [None]
  - PERICARDIAL DRAINAGE [None]
  - PERICARDIAL EFFUSION [None]
  - PERICARDIAL EXCISION [None]
  - VOMITING [None]
  - WEIGHT DECREASED [None]
